FAERS Safety Report 9170088 (Version 1)
Quarter: 2013Q1

REPORT INFORMATION
  Report Type: Spontaneous
  Country: US (occurrence: None)
  Receive Date: 20130314
  Receipt Date: 20130314
  Transmission Date: 20140127
  Serious: Yes (Life-Threatening)
  Sender: FDA-Public Use
  Company Number: None

PATIENT
  Sex: Female
  Weight: 73.48 kg

DRUGS (1)
  1. AZITHROMYCIN [Suspect]
     Indication: PNEUMONIA VIRAL
     Dosage: 2 PILLS FIRST DAY 1 PILL FOR NEXT 4??ONE DOSE OF 2 TABLETS
     Dates: start: 20130211, end: 20130211

REACTIONS (2)
  - Palpitations [None]
  - Diarrhoea [None]
